FAERS Safety Report 12778393 (Version 1)
Quarter: 2016Q3

REPORT INFORMATION
  Report Type: Spontaneous
  Country: US (occurrence: US)
  Receive Date: 20160926
  Receipt Date: 20160926
  Transmission Date: 20161109
  Serious: No
  Sender: FDA-Public Use
  Company Number: US-PAR PHARMACEUTICAL, INC-2016SCPR015133

PATIENT

DRUGS (4)
  1. ATENOLOL W/HYDROCHLOROTHIAZIDE [Concomitant]
     Active Substance: ATENOLOL\HYDROCHLOROTHIAZIDE
     Indication: HYPERTENSION
     Dosage: UNK, OD
     Route: 048
  2. LIPITOR [Concomitant]
     Active Substance: ATORVASTATIN CALCIUM
     Indication: BLOOD CHOLESTEROL INCREASED
     Dosage: UNK, OD
     Route: 048
  3. LISINOPRIL. [Concomitant]
     Active Substance: LISINOPRIL
     Indication: HYPERTENSION
     Dosage: UNK, OD
     Route: 048
  4. CLONAZEPAM. [Suspect]
     Active Substance: CLONAZEPAM
     Indication: ANXIETY
     Dosage: 1 DF, BID
     Route: 048
     Dates: start: 2015

REACTIONS (4)
  - Withdrawal syndrome [Not Recovered/Not Resolved]
  - Therapy cessation [Unknown]
  - Product use issue [Unknown]
  - Product quality issue [Unknown]

NARRATIVE: CASE EVENT DATE: 201512
